FAERS Safety Report 11416899 (Version 2)
Quarter: 2016Q2

REPORT INFORMATION
  Report Type: Spontaneous
  Country: US (occurrence: US)
  Receive Date: 20150825
  Receipt Date: 20160504
  Transmission Date: 20160815
  Serious: Yes (Other)
  Sender: FDA-Public Use
  Company Number: US-BAYER-2015-402651

PATIENT
  Age: 27 Year
  Sex: Female

DRUGS (1)
  1. MIRENA [Suspect]
     Active Substance: LEVONORGESTREL
     Indication: CONTRACEPTION
     Dosage: 20 MCG/24HR, CONT
     Route: 015
     Dates: start: 20060831, end: 201009

REACTIONS (9)
  - Headache [None]
  - Vomiting [None]
  - Benign intracranial hypertension [None]
  - Pain [None]
  - Nausea [None]
  - Papilloedema [None]
  - Device dislocation [None]
  - Diplopia [None]
  - Injury [None]

NARRATIVE: CASE EVENT DATE: 20080806
